FAERS Safety Report 7600389-6 (Version None)
Quarter: 2011Q3

REPORT INFORMATION
  Report Type: 
  Country: None (occurrence: None)
  Receive Date: 20110711
  Receipt Date: 20110629
  Transmission Date: 20111222
  Serious: Yes (Other)
  Sender: FDA-Public Use
  Company Number: US-ELI_LILLY_AND_COMPANY-US201106003243

PATIENT
  Sex: Female

DRUGS (2)
  1. FORTEO [Suspect]
     Dosage: 20 UG, UNKNOWN
     Route: 065
     Dates: start: 20110523
  2. FORTEO [Suspect]
     Dosage: 20 UG, UNKNOWN
     Route: 065

REACTIONS (4)
  - MALAISE [None]
  - CHEST PAIN [None]
  - NAUSEA [None]
  - MYOCARDIAL INFARCTION [None]
